FAERS Safety Report 12715506 (Version 1)
Quarter: 2016Q3

REPORT INFORMATION
  Report Type: Spontaneous
  Country: GE (occurrence: GE)
  Receive Date: 20160906
  Receipt Date: 20160906
  Transmission Date: 20161109
  Serious: Yes (Other)
  Sender: FDA-Public Use
  Company Number: GE-ROCHE-1825596

PATIENT
  Age: 65 Year
  Sex: Female

DRUGS (3)
  1. ESBRIET [Suspect]
     Active Substance: PIRFENIDONE
     Indication: IDIOPATHIC PULMONARY FIBROSIS
     Dosage: FIRST WEEK
     Route: 048
     Dates: start: 201608, end: 201608
  2. MEDROL [Concomitant]
     Active Substance: METHYLPREDNISOLONE
  3. ESBRIET [Suspect]
     Active Substance: PIRFENIDONE
     Dosage: SECOND WEEK
     Route: 048
     Dates: end: 201608

REACTIONS (3)
  - Dermatitis allergic [Recovered/Resolved]
  - Headache [Recovered/Resolved]
  - Urticaria [Recovered/Resolved]

NARRATIVE: CASE EVENT DATE: 201608
